FAERS Safety Report 21044437 (Version 1)
Quarter: 2022Q3

REPORT INFORMATION
  Report Type: Spontaneous
  Country: CN (occurrence: CN)
  Receive Date: 20220705
  Receipt Date: 20220705
  Transmission Date: 20221027
  Serious: Yes (Other)
  Sender: FDA-Public Use
  Company Number: CN-ABBVIE-22K-035-4424922-00

PATIENT

DRUGS (2)
  1. VENETOCLAX [Suspect]
     Active Substance: VENETOCLAX
     Indication: Acute myeloid leukaemia
     Dosage: 200-400MG (DAY 1-28) DOSE ADJUSTED ACCORDING TO AE
     Route: 048
  2. AZACITIDINE [Suspect]
     Active Substance: AZACITIDINE
     Indication: Acute myeloid leukaemia
     Dosage: DAY 1-7
     Route: 058

REACTIONS (16)
  - Myelosuppression [Unknown]
  - Infection [Unknown]
  - Diarrhoea [Unknown]
  - Constipation [Unknown]
  - Haemoglobin decreased [Unknown]
  - Thrombocytopenia [Unknown]
  - Hypokalaemia [Unknown]
  - Abdominal pain [Unknown]
  - Nausea [Unknown]
  - Decreased appetite [Unknown]
  - Pyrexia [Unknown]
  - Cough [Unknown]
  - Leukopenia [Unknown]
  - Neutropenia [Unknown]
  - Vomiting [Unknown]
  - Fatigue [Unknown]
